FAERS Safety Report 20821814 (Version 5)
Quarter: 2022Q3

REPORT INFORMATION
  Report Type: Spontaneous
  Country: CA (occurrence: CA)
  Receive Date: 20220512
  Receipt Date: 20220713
  Transmission Date: 20221027
  Serious: Yes (Death, Hospitalization, Other)
  Sender: FDA-Public Use
  Company Number: CA-PFIZER INC-202200036776

PATIENT
  Age: 76 Year
  Sex: Female

DRUGS (7)
  1. BRAFTOVI [Suspect]
     Active Substance: ENCORAFENIB
     Dosage: UNK
     Dates: start: 20220408
  2. BRAFTOVI [Suspect]
     Active Substance: ENCORAFENIB
     Dosage: FOR 28 DAYS WITH OR WITHOUT FOOD. INCREASE TO 300MG DAILY AFTER 14 DAYS IF TOLERATED
     Route: 048
  3. BRAFTOVI [Suspect]
     Active Substance: ENCORAFENIB
     Dosage: DAILY FOR 28 DAYS
     Route: 048
     Dates: start: 20220408
  4. BENADRYL [Concomitant]
     Active Substance: DIPHENHYDRAMINE HYDROCHLORIDE
     Dosage: UNK
     Route: 041
  5. CETUXIMAB [Concomitant]
     Active Substance: CETUXIMAB
     Dosage: UNK
  6. PROCHLORPERAZINE MALEATE [Concomitant]
     Active Substance: PROCHLORPERAZINE MALEATE
     Dosage: 10 MG, Q4-6H
     Route: 048
  7. METOCLOPRAMIDE [Concomitant]
     Active Substance: METOCLOPRAMIDE
     Dosage: 5 MG, EVERY 6 HOURS
     Route: 048

REACTIONS (7)
  - Death [Fatal]
  - Gastrointestinal pain [Unknown]
  - Gait disturbance [Unknown]
  - Choking [Unknown]
  - Hypoacusis [Unknown]
  - Hypersensitivity [Unknown]
  - COVID-19 [Unknown]

NARRATIVE: CASE EVENT DATE: 20220601
